FAERS Safety Report 21286607 (Version 1)
Quarter: 2022Q3

REPORT INFORMATION
  Report Type: Spontaneous
  Country: US (occurrence: None)
  Receive Date: 20220902
  Receipt Date: 20220902
  Transmission Date: 20221027
  Serious: Yes (Other)
  Sender: FDA-Public Use
  Company Number: None

PATIENT
  Age: 28 Year
  Sex: Female

DRUGS (5)
  1. AMPHETAMINE\DEXTROAMPHETAMINE [Suspect]
     Active Substance: AMPHETAMINE\DEXTROAMPHETAMINE
     Indication: Attention deficit hyperactivity disorder
     Route: 048
     Dates: start: 20220804, end: 20220901
  2. Generic IR adderall [Concomitant]
  3. MIRENA [Concomitant]
     Active Substance: LEVONORGESTREL
  4. GUANFACINE [Concomitant]
     Active Substance: GUANFACINE
  5. IBUPROFEN [Concomitant]
     Active Substance: IBUPROFEN

REACTIONS (10)
  - Product substitution issue [None]
  - Headache [None]
  - Dizziness [None]
  - Palpitations [None]
  - Insomnia [None]
  - Drug half-life increased [None]
  - Therapeutic response delayed [None]
  - Therapy interrupted [None]
  - Drug intolerance [None]
  - Suspected product quality issue [None]

NARRATIVE: CASE EVENT DATE: 20220901
